FAERS Safety Report 9458948 (Version 2)
Quarter: 2013Q3

REPORT INFORMATION
  Report Type: Spontaneous
  Country: AU (occurrence: AU)
  Receive Date: 20130814
  Receipt Date: 20130822
  Transmission Date: 20140515
  Serious: Yes (Death, Hospitalization)
  Sender: FDA-Public Use
  Company Number: AU-B.I. PHARMACEUTICALS,INC./RIDGEFIELD-2013-AU-00977AU

PATIENT
  Age: 91 Year
  Sex: Female
  Weight: 65 kg

DRUGS (17)
  1. PRADAXA [Suspect]
     Indication: CEREBROVASCULAR ACCIDENT PROPHYLAXIS
     Dosage: 220 MG
     Dates: start: 20110912, end: 20130520
  2. PRADAXA [Suspect]
     Indication: ATRIAL FIBRILLATION
  3. ARISTOCORT [Concomitant]
     Dosage: 0.02%
  4. CITALOPRAM [Concomitant]
     Dosage: 10 MG
  5. DOCUSATE SODIUM\SENNOSIDES [Concomitant]
     Dosage: 100 MG; 16 MG
  6. DIPROSONE OV [Concomitant]
     Dosage: 0.05%
  7. ENDONE [Concomitant]
  8. FRUSEMIDE [Concomitant]
     Dosage: 40 MG
  9. LYRICA [Concomitant]
     Dosage: 50 MG
  10. MIRTAZAPINE [Concomitant]
     Dosage: 7.5 MG
  11. NEO-B12 [Concomitant]
     Dosage: 0.0111 MG
  12. PANADOL OSTEO [Concomitant]
     Dosage: 3990 MG
  13. PEROXIDE [Concomitant]
     Dosage: 3 DROPS TWICE A DAY LEFT SIDE
  14. RENNIE [Concomitant]
     Dosage: 680 MG; 80 MG
  15. SOMAC [Concomitant]
     Dosage: 40 MG
  16. STEMZINE [Concomitant]
     Dosage: 15 MG
  17. TEMTABS [Concomitant]
     Dosage: 10 MG

REACTIONS (5)
  - Cerebrovascular accident [Fatal]
  - Renal failure chronic [Fatal]
  - Bronchitis [Unknown]
  - Cardiac failure [Unknown]
  - Anaemia [Unknown]
